FAERS Safety Report 20763695 (Version 1)
Quarter: 2022Q2

REPORT INFORMATION
  Report Type: Report from Study
  Country: US (occurrence: US)
  Receive Date: 20220428
  Receipt Date: 20220428
  Transmission Date: 20220721
  Serious: Yes (Other)
  Sender: FDA-Public Use
  Company Number: US-BAYER-2022A061559

PATIENT
  Sex: Female

DRUGS (5)
  1. ASPIRIN [Suspect]
     Active Substance: ASPIRIN
     Indication: Immune tolerance induction
     Dosage: 20.25 MG
  2. ASPIRIN [Suspect]
     Active Substance: ASPIRIN
     Indication: Immune tolerance induction
     Dosage: 40.5 MG
  3. ASPIRIN [Suspect]
     Active Substance: ASPIRIN
     Indication: Immune tolerance induction
     Dosage: 60.75 MG
  4. ASPIRIN [Suspect]
     Active Substance: ASPIRIN
     Indication: Immune tolerance induction
     Dosage: 81 MG, QD
  5. PLAVIX [Concomitant]
     Active Substance: CLOPIDOGREL BISULFATE
     Dosage: 75 MG, QD

REACTIONS (2)
  - Drug hypersensitivity [None]
  - Off label use [None]
